FAERS Safety Report 9582715 (Version 1)
Quarter: 2013Q4

REPORT INFORMATION
  Report Type: Spontaneous
  Country: US (occurrence: US)
  Receive Date: 20131002
  Receipt Date: 20131002
  Transmission Date: 20140711
  Serious: No
  Sender: FDA-Public Use
  Company Number: US-AMGEN-USASP2013042871

PATIENT
  Age: 32 Year
  Sex: Female
  Weight: 81.63 kg

DRUGS (4)
  1. ENBREL [Suspect]
     Indication: PRODUCT USED FOR UNKNOWN INDICATION
     Dosage: 50 MG, QWK
     Route: 058
  2. ZOLOFT [Concomitant]
     Dosage: 25 MG, UNK
     Route: 048
  3. METFORMIN [Concomitant]
     Dosage: 1000 MG, UNK
     Route: 048
  4. PRENATAL                           /01529801/ [Concomitant]
     Dosage: UNK
     Route: 048

REACTIONS (2)
  - Injection site pain [Unknown]
  - Psoriasis [Unknown]
